FAERS Safety Report 18657909 (Version 1)
Quarter: 2020Q4

REPORT INFORMATION
  Report Type: Spontaneous
  Country: DE (occurrence: DE)
  Receive Date: 20201224
  Receipt Date: 20201224
  Transmission Date: 20210114
  Serious: Yes (Hospitalization)
  Sender: FDA-Public Use
  Company Number: DE-TEVA-2020-DE-1861216

PATIENT
  Age: 91 Year
  Sex: Female

DRUGS (9)
  1. TORASEMID [Suspect]
     Active Substance: TORSEMIDE
     Dosage: 5 MILLIGRAM DAILY; 5 MG, 1-0-0-0
  2. PHENPROCOUMON [Suspect]
     Active Substance: PHENPROCOUMON
     Dosage: 3 MG, ACCORDING TO PLAN
  3. SIMVASTATIN. [Concomitant]
     Active Substance: SIMVASTATIN
     Dosage: 20 MILLIGRAM DAILY; 20 MG, 0-0-1-0
  4. RISPERIDON 0,25 MG [Suspect]
     Active Substance: RISPERIDONE
     Dosage: .25 MILLIGRAM DAILY; 0.25 MG, 0-0-1-0
  5. RAMIPRIL. [Concomitant]
     Active Substance: RAMIPRIL
     Dosage: 5 MILLIGRAM DAILY; 5 MG, 1-0-0-0
  6. IBEROGAST [Concomitant]
     Active Substance: HERBALS
     Dosage: 60 GTT DAILY; 20-20-20-0, DROPS
  7. METOPROLOL. [Concomitant]
     Active Substance: METOPROLOL
     Dosage: 95 MILLIGRAM DAILY; 47.5 MG, 1-0-1-0
  8. RISPERIDON 0.5 MG [Suspect]
     Active Substance: RISPERIDONE
     Dosage: .5 MILLIGRAM DAILY; 0.5 MG, 1-0-0-0
  9. MIRTAZAPIN [Suspect]
     Active Substance: MIRTAZAPINE
     Dosage: 7.5 MILLIGRAM DAILY; 15 MG, 0-0-0.5-0

REACTIONS (8)
  - Dehydration [Unknown]
  - Vomiting [Unknown]
  - Nausea [Unknown]
  - Overdose [Unknown]
  - Abdominal pain [Unknown]
  - International normalised ratio increased [Unknown]
  - Faecaloma [Unknown]
  - Product monitoring error [Unknown]

NARRATIVE: CASE EVENT DATE: 20201103
